FAERS Safety Report 16552061 (Version 1)
Quarter: 2019Q3

REPORT INFORMATION
  Report Type: Spontaneous
  Country: GB (occurrence: GB)
  Receive Date: 20190710
  Receipt Date: 20190710
  Transmission Date: 20191004
  Serious: Yes (Other)
  Sender: FDA-Public Use
  Company Number: PHHY2019GB156493

PATIENT
  Age: 4 Year
  Sex: Male

DRUGS (4)
  1. CLENIL MODULITE [Concomitant]
     Active Substance: BECLOMETHASONE DIPROPIONATE
     Indication: ASTHMA
     Route: 055
  2. MONTELUKAST [Suspect]
     Active Substance: MONTELUKAST SODIUM
     Indication: ASTHMA
     Dosage: 4 MG, UNK
     Route: 048
     Dates: start: 20181031, end: 20190515
  3. CETIRIZINE [Concomitant]
     Active Substance: CETIRIZINE HYDROCHLORIDE
     Indication: PRURITUS
     Dosage: 5 MG, QD
     Route: 048
  4. SALBUTAMOL [Concomitant]
     Active Substance: ALBUTEROL
     Indication: ASTHMA
     Route: 055

REACTIONS (5)
  - Abnormal behaviour [Recovered/Resolved]
  - Crying [Recovered/Resolved]
  - Emotional distress [Recovered/Resolved]
  - Mood swings [Recovered/Resolved]
  - Irritability [Recovered/Resolved]
